FAERS Safety Report 9988616 (Version 2)
Quarter: 2014Q2

REPORT INFORMATION
  Report Type: Spontaneous
  Country: IT (occurrence: IT)
  Receive Date: 20140310
  Receipt Date: 20140428
  Transmission Date: 20141212
  Serious: Yes (Other)
  Sender: FDA-Public Use
  Company Number: IT-BRISTOL-MYERS SQUIBB COMPANY-20351409

PATIENT
  Age: 44 Year
  Sex: Male

DRUGS (3)
  1. AKINETON [Suspect]
     Dosage: 1DF= 10TABS?LONG RELEASE TABS  3 MG
     Route: 048
     Dates: start: 20140116, end: 20140116
  2. INVEGA [Suspect]
     Dosage: 1 DF= 10TABS?LONG RELEASE TABS  4MG
     Route: 048
     Dates: start: 20140116, end: 20140116
  3. ABILIFY DISCMELT TABS 10MG [Suspect]
     Route: 048
     Dates: start: 20140116, end: 20140116

REACTIONS (3)
  - Agitation [Unknown]
  - Drug abuse [Unknown]
  - Intentional self-injury [Unknown]
